FAERS Safety Report 25934684 (Version 1)
Quarter: 2025Q4

REPORT INFORMATION
  Report Type: Spontaneous
  Country: EU (occurrence: EU)
  Receive Date: 20251017
  Receipt Date: 20251017
  Transmission Date: 20260117
  Serious: Yes (Death)
  Sender: RANBAXY
  Company Number: EU-ALMIRALL-CZ-2025-3628

PATIENT
  Age: 71 Year
  Sex: Female
  Weight: 46 kg

DRUGS (1)
  1. TILDRAKIZUMAB [Suspect]
     Active Substance: TILDRAKIZUMAB
     Indication: Psoriasis
     Dosage: AS PER SMPC
     Route: 058

REACTIONS (1)
  - Death [Fatal]
